FAERS Safety Report 4740498-2 (Version None)
Quarter: 2005Q3

REPORT INFORMATION
  Report Type: 
  Country: None (occurrence: None)
  Receive Date: 20050809
  Receipt Date: 20050727
  Transmission Date: 20060218
  Serious: Yes (Life-Threatening, Hospitalization)
  Sender: FDA-Public Use
  Company Number: GXKR2005DE01385

PATIENT
  Age: 70 Year
  Sex: Male
  Weight: 100 kg

DRUGS (8)
  1. DIABETASE           (NGX) (METFORMIN) [Suspect]
     Indication: DIABETES MELLITUS
     Dosage: 850 MG, ORAL
     Route: 048
  2. RAMIPRIL [Concomitant]
  3. ATACAND [Concomitant]
  4. SORTIS                 (ATORVASTATIN) [Concomitant]
  5. ISOPTIN [Concomitant]
  6. FALITHROM                    (PHENPROCOUMON) [Concomitant]
  7. GLYBURIDE [Concomitant]
  8. DIGITOXIN TAB [Concomitant]

REACTIONS (21)
  - ACUTE ABDOMEN [None]
  - BLOOD GLUCOSE INCREASED [None]
  - CARDIAC FAILURE [None]
  - CARDIOVASCULAR DISORDER [None]
  - COAGULOPATHY [None]
  - COMA [None]
  - DEHYDRATION [None]
  - GASTROENTERITIS [None]
  - GENERAL PHYSICAL HEALTH DETERIORATION [None]
  - HAEMODIALYSIS [None]
  - HEPATOMEGALY [None]
  - HYPERTENSION [None]
  - HYPONATRAEMIA [None]
  - LACTIC ACIDOSIS [None]
  - OESOPHAGITIS [None]
  - PNEUMONIA [None]
  - RENAL FAILURE ACUTE [None]
  - RESPIRATORY FAILURE [None]
  - RHABDOMYOLYSIS [None]
  - TACHYARRHYTHMIA [None]
  - WHITE BLOOD CELL COUNT INCREASED [None]
